FAERS Safety Report 19644707 (Version 1)
Quarter: 2021Q3

REPORT INFORMATION
  Report Type: Spontaneous
  Country: US (occurrence: US)
  Receive Date: 20210802
  Receipt Date: 20210802
  Transmission Date: 20211014
  Serious: Yes (Other)
  Sender: FDA-Public Use
  Company Number: US-AUROBINDO-AUR-APL-2021-032125

PATIENT
  Age: 62 Year
  Sex: Female

DRUGS (10)
  1. RIFAMPICIN [Concomitant]
     Active Substance: RIFAMPIN
     Indication: PRODUCT USED FOR UNKNOWN INDICATION
     Dosage: UNK
     Route: 065
  2. MITOMYCIN C [Suspect]
     Active Substance: MITOMYCIN
     Indication: PRODUCT USED FOR UNKNOWN INDICATION
     Dosage: UNK
     Route: 065
  3. DAPSONE. [Concomitant]
     Active Substance: DAPSONE
     Indication: PRODUCT USED FOR UNKNOWN INDICATION
     Dosage: UNK
     Route: 065
  4. TIMOLOL. [Suspect]
     Active Substance: TIMOLOL
     Indication: UVEITIC GLAUCOMA
     Dosage: UNK UNK, TWO TIMES A DAY (IN HER RIGHT EYE)
     Route: 061
  5. PREDNISOLONE ACETATE. [Suspect]
     Active Substance: PREDNISOLONE ACETATE
     Indication: UVEITIC GLAUCOMA
     Dosage: UNK (EVERY 3 H)
     Route: 065
  6. BRIMONIDINE;DORZOLAMIDE;TIMOLOL [Suspect]
     Active Substance: BRIMONIDINE TARTRATE\DORZOLAMIDE HYDROCHLORIDE\TIMOLOL MALEATE
     Indication: UVEITIC GLAUCOMA
     Dosage: UNK UNK, TWO TIMES A DAY (IN OU)
     Route: 061
  7. LOTEPREDNOL ETABONATE [Suspect]
     Active Substance: LOTEPREDNOL ETABONATE
     Indication: IRIDOCYCLITIS
     Dosage: UNK, FOUR TIMES/DAY (IN OU FOR ONE MONTH, OBTAINING OPTIMAL)
     Route: 061
  8. DORZOLAMIDE HYDROCHLORIDE+TIMOLOL MALEATE [Suspect]
     Active Substance: DORZOLAMIDE HYDROCHLORIDE\TIMOLOL MALEATE
     Indication: UVEITIC GLAUCOMA
     Dosage: UNK UNK, TWO TIMES A DAY (IN HER LEFT EYE (OS))
     Route: 061
  9. BRIMONIDINE;DORZOLAMIDE;TIMOLOL [Suspect]
     Active Substance: BRIMONIDINE TARTRATE\DORZOLAMIDE HYDROCHLORIDE\TIMOLOL MALEATE
     Indication: INTRAOCULAR PRESSURE INCREASED
  10. CLOFAZIMINE [Concomitant]
     Active Substance: CLOFAZIMINE
     Indication: PRODUCT USED FOR UNKNOWN INDICATION
     Dosage: UNK
     Route: 065

REACTIONS (1)
  - Drug ineffective [Unknown]
